FAERS Safety Report 4278165-4 (Version None)
Quarter: 2004Q1

REPORT INFORMATION
  Report Type: 
  Country: None (occurrence: None)
  Receive Date: 20040121
  Receipt Date: 20040108
  Transmission Date: 20041129
  Serious: Yes (Hospitalization, Other)
  Sender: FDA-Public Use
  Company Number: UK062676

PATIENT
  Age: 81 Year
  Sex: Male
  Weight: 60.5 kg

DRUGS (9)
  1. ARANESP [Suspect]
     Indication: DIALYSIS
     Dosage: 100 MCG, WEEKLY, IV
     Route: 042
     Dates: start: 20030614
  2. SIMVASTATIN [Concomitant]
  3. FUROSEMIDE [Concomitant]
  4. CALCIUM ACETATE [Concomitant]
  5. RAMIPRIL [Concomitant]
  6. ASPIRIN [Concomitant]
  7. PANTOPRAZOLE [Suspect]
  8. THEOPHYLLINE [Concomitant]
  9. PREDNISOLONE [Concomitant]

REACTIONS (5)
  - ANAEMIA [None]
  - BONE MARROW DEPRESSION [None]
  - OSTEOPENIA [None]
  - PNEUMONIA [None]
  - RENAL FAILURE CHRONIC [None]
